FAERS Safety Report 10422838 (Version 2)
Quarter: 2014Q3

REPORT INFORMATION
  Report Type: Report from Study
  Country: US (occurrence: US)
  Receive Date: 20140902
  Receipt Date: 20140918
  Transmission Date: 20150326
  Serious: Yes (Other)
  Sender: FDA-Public Use
  Company Number: US-009507513-1408USA016027

PATIENT

DRUGS (4)
  1. TEMODAR [Suspect]
     Active Substance: TEMOZOLOMIDE
     Dosage: 200 MG/M2/DAY(DAY 1 TO 5 FOR EACH 28 DAY CYCLE)
     Route: 048
  2. TEMODAR [Suspect]
     Active Substance: TEMOZOLOMIDE
     Indication: METASTATIC MALIGNANT MELANOMA
     Dosage: 200 MG/M2/DAY (DAYS 8 TO 12)
     Route: 048
  3. EVEROLIMUS [Suspect]
     Active Substance: EVEROLIMUS
     Indication: METASTATIC MALIGNANT MELANOMA
     Dosage: 10 MG/DAY(1 TO 5,8 TO 12,15 TO 19,22 TO 26,29 TO 33)
  4. EVEROLIMUS [Suspect]
     Active Substance: EVEROLIMUS
     Dosage: 10 MG/DAY(1 TO 5,8 TO 12,15 TO 19 ,22 TO 26)

REACTIONS (1)
  - Haematotoxicity [Unknown]
